FAERS Safety Report 15117310 (Version 1)
Quarter: 2018Q3

REPORT INFORMATION
  Report Type: Spontaneous
  Country: PL (occurrence: PL)
  Receive Date: 20180706
  Receipt Date: 20180706
  Transmission Date: 20181010
  Serious: Yes (Other)
  Sender: FDA-Public Use
  Company Number: PL-MYLANLABS-2018M1047717

PATIENT
  Age: 72 Year
  Sex: Female

DRUGS (2)
  1. RYTMONORM 150 MG [Suspect]
     Active Substance: PROPAFENONE
     Indication: ATRIAL FIBRILLATION
     Dosage: 1 DF, TID
     Route: 048
  2. RYTMONORM 150 MG [Suspect]
     Active Substance: PROPAFENONE
     Indication: VENTRICULAR FIBRILLATION

REACTIONS (2)
  - Drug ineffective [Not Recovered/Not Resolved]
  - No adverse event [Unknown]
